FAERS Safety Report 4874841-0 (Version None)
Quarter: 2006Q1

REPORT INFORMATION
  Report Type: 
  Country: None (occurrence: None)
  Receive Date: 20060104
  Receipt Date: 20051220
  Transmission Date: 20060701
  Serious: Yes (Other)
  Sender: FDA-Public Use
  Company Number: 2005119754

PATIENT

DRUGS (4)
  1. VFEND [Suspect]
     Indication: BRONCHOPULMONARY ASPERGILLOSIS
     Dosage: 400 MG, ORAL; 200 MG, ORAL
     Route: 048
     Dates: start: 20050818, end: 20050821
  2. VFEND [Suspect]
     Indication: BRONCHOPULMONARY ASPERGILLOSIS
     Dosage: 400 MG, ORAL; 200 MG, ORAL
     Route: 048
     Dates: start: 20051004
  3. WARFARIN SODIUM [Suspect]
     Indication: ATRIAL FIBRILLATION
     Dosage: 1 MG, ORAL
     Route: 048
     Dates: start: 20020101, end: 20050821
  4. ITRACONAZOLE [Concomitant]

REACTIONS (12)
  - BRONCHOPULMONARY ASPERGILLOSIS [None]
  - CONDITION AGGRAVATED [None]
  - DELIRIUM [None]
  - DIZZINESS [None]
  - DRUG INEFFECTIVE [None]
  - HAEMORRHAGIC DIATHESIS [None]
  - INTERNATIONAL NORMALISED RATIO INCREASED [None]
  - NAUSEA [None]
  - PULMONARY HAEMORRHAGE [None]
  - SEDATION [None]
  - VOMITING [None]
  - XANTHOPSIA [None]
